FAERS Safety Report 7718878-2 (Version None)
Quarter: 2011Q3

REPORT INFORMATION
  Report Type: 
  Country: None (occurrence: None)
  Receive Date: 20110830
  Receipt Date: 20110825
  Transmission Date: 20111222
  Serious: Yes (Other)
  Sender: FDA-Public Use
  Company Number: FR-PFIZER INC-2011054199

PATIENT
  Age: 61 Year
  Sex: Male
  Weight: 65 kg

DRUGS (6)
  1. VALACYCLOVIR HYDROCHLORIDE [Concomitant]
     Indication: OPPORTUNISTIC INFECTION PROPHYLAXIS
     Dosage: 500 MG, 1X/DAY
     Route: 048
     Dates: start: 20100918
  2. LYRICA [Suspect]
     Indication: NEURALGIA
     Dosage: 50 MG, 2X/DAY
     Dates: start: 20101111, end: 20110110
  3. PYRIMETHAMINE TAB [Concomitant]
     Indication: OPPORTUNISTIC INFECTION PROPHYLAXIS
     Dosage: 50 MG, 1X/DAY
     Route: 048
     Dates: start: 20100918
  4. LOVENOX [Concomitant]
     Dosage: 2000 IU, 1X/DAY
     Route: 058
     Dates: start: 20101123
  5. PLAVIX [Suspect]
     Indication: SUBCLAVIAN ARTERY STENOSIS
     Dosage: 75 MG, 1X/DAY
     Dates: start: 20001123, end: 20110110
  6. MYOLASTAN [Concomitant]
     Indication: MUSCLE CONTRACTURE
     Dosage: 25 MG, 1X/DAY
     Route: 048
     Dates: start: 20101123

REACTIONS (3)
  - LEUKOPENIA [None]
  - NEUTROPENIA [None]
  - GRANULOCYTOPENIA [None]
